FAERS Safety Report 4510538-4 (Version None)
Quarter: 2004Q4

REPORT INFORMATION
  Report Type: 
  Country: None (occurrence: None)
  Receive Date: 20041122
  Receipt Date: 20041109
  Transmission Date: 20050328
  Serious: Yes (Hospitalization)
  Sender: FDA-Public Use
  Company Number: 2004PL000069

PATIENT
  Age: 79 Year
  Sex: Male
  Weight: 86.1834 kg

DRUGS (3)
  1. IMURAN [Suspect]
     Indication: VASCULITIS
     Dosage: 50 MG; TWICE A DAY; ORAL
     Route: 048
     Dates: start: 20041010, end: 20041025
  2. ACTONEL [Concomitant]
  3. PREDNISONE [Concomitant]

REACTIONS (7)
  - ARTHRITIS [None]
  - CHILLS [None]
  - CONDITION AGGRAVATED [None]
  - PYREXIA [None]
  - SEPSIS SYNDROME [None]
  - SYSTEMIC INFLAMMATORY RESPONSE SYNDROME [None]
  - VASCULITIS [None]
